FAERS Safety Report 6981467-1 (Version None)
Quarter: 2010Q3

REPORT INFORMATION
  Report Type: 
  Country: None (occurrence: None)
  Receive Date: 20100914
  Receipt Date: 20100831
  Transmission Date: 20110219
  Serious: Yes (Hospitalization)
  Sender: FDA-Public Use
  Company Number: IE-MYLANLABS-2010S1015951

PATIENT
  Age: 68 Year
  Sex: Female

DRUGS (13)
  1. FLUCLOXACILLIN [Interacting]
     Indication: SOFT TISSUE INFECTION
     Route: 048
  2. WARFARIN SODIUM [Suspect]
     Indication: ATRIAL FIBRILLATION
     Dosage: DOSES OF 4 AND 3MG ON ALTERNATE DAYS
     Route: 065
  3. QUINAPRIL [Concomitant]
     Route: 065
  4. ATORVASTATIN CALCIUM [Concomitant]
     Route: 065
  5. METOPROLOL TARTRATE [Concomitant]
     Route: 065
  6. LERCANIDIPINE [Concomitant]
     Route: 065
  7. SPIRONOLACTONE [Concomitant]
     Route: 065
  8. BUMETANIDE [Concomitant]
     Route: 065
  9. DIGOXIN [Concomitant]
     Route: 065
  10. METFORMIN HCL [Concomitant]
     Route: 065
  11. GLICLAZIDE [Concomitant]
     Route: 065
  12. ISOPHANE INSULIN [Concomitant]
     Route: 065
  13. PHENOXYMETHYLPENICILLIN [Concomitant]
     Indication: SOFT TISSUE INFECTION
     Route: 048

REACTIONS (3)
  - COAGULATION TIME SHORTENED [None]
  - DRUG INTERACTION [None]
  - EMBOLIC STROKE [None]
